FAERS Safety Report 19295173 (Version 1)
Quarter: 2021Q2

REPORT INFORMATION
  Report Type: Spontaneous
  Country: DE (occurrence: DE)
  Receive Date: 20210524
  Receipt Date: 20210524
  Transmission Date: 20210717
  Serious: Yes (Other)
  Sender: FDA-Public Use
  Company Number: DE-ORGANON-O2105DEU001478

PATIENT
  Age: 58 Year
  Sex: Female
  Weight: 58 kg

DRUGS (4)
  1. NOVALGIN (METAMIZOLE SODIUM) [Concomitant]
     Active Substance: METAMIZOLE SODIUM
     Indication: RHEUMATIC DISORDER
     Dosage: ASNECESSARY
  2. MAGNESIUM VERLA CONCENTRATED [Concomitant]
     Indication: THYROID MASS
     Dosage: USE FOR 10 YEARS 1?1?1
  3. LORZAAR PROTECT 50MG FILMTABLETTEN [Suspect]
     Active Substance: LOSARTAN
     Indication: HYPERTENSION
     Dosage: 1?0?1, FILM?COATED TABLET
     Dates: start: 1990
  4. WOBENZYM [BROMELAINS;CHYMOTRYPSIN;DIASTASE;LIPASE;PANCREATIN;PAPAIN;TR [Concomitant]
     Active Substance: BROMELAINS\CHYMOTRYPSIN\DIASTASE\LIPASE\PANCRELIPASE\PAPAIN\TRYPSIN
     Dosage: USE FOR 10 YEARS, ASNECESSARY

REACTIONS (5)
  - Cough [Not Recovered/Not Resolved]
  - Discomfort [Not Recovered/Not Resolved]
  - Non-Hodgkin^s lymphoma [Not Recovered/Not Resolved]
  - Dyspnoea [Not Recovered/Not Resolved]
  - Dysphonia [Not Recovered/Not Resolved]

NARRATIVE: CASE EVENT DATE: 2002
